FAERS Safety Report 14229220 (Version 2)
Quarter: 2017Q4

REPORT INFORMATION
  Report Type: Spontaneous
  Country: FR (occurrence: FR)
  Receive Date: 20171128
  Receipt Date: 20171205
  Transmission Date: 20180321
  Serious: Yes (Hospitalization)
  Sender: FDA-Public Use
  Company Number: FR-UCBSA-2017047307

PATIENT
  Age: 27 Year
  Sex: Male

DRUGS (8)
  1. BELUSTINE [Suspect]
     Active Substance: LOMUSTINE
     Indication: GLIONEURONAL TUMOUR
     Dosage: 160 MG DAILY
     Route: 048
     Dates: start: 20170301, end: 20170712
  2. TAVANIC [Suspect]
     Active Substance: LEVOFLOXACIN
     Indication: PYREXIA
     Dosage: UNK
     Route: 048
     Dates: start: 20170804, end: 20170810
  3. PARACETAMOL [Suspect]
     Active Substance: ACETAMINOPHEN
     Indication: PYREXIA
     Dosage: 4 G DAILY
     Route: 042
     Dates: start: 20170731, end: 20170807
  4. NATULAN [Suspect]
     Active Substance: PROCARBAZINE HYDROCHLORIDE
     Indication: GLIONEURONAL TUMOUR
     Dosage: 100 MG DAILY
     Route: 048
     Dates: start: 20170308, end: 20170801
  5. KEPPRA [Suspect]
     Active Substance: LEVETIRACETAM
     Indication: EPILEPSY
     Dosage: 750 MG, 2X/DAY (BID)
     Route: 048
  6. TEMODAL [Concomitant]
     Active Substance: TEMOZOLOMIDE
     Indication: GLIONEURONAL TUMOUR
     Dosage: UNK
     Dates: end: 201301
  7. VINCRISTINE TEVA [Suspect]
     Active Substance: VINCRISTINE
     Indication: GLIONEURONAL TUMOUR
     Dosage: 2 MG DAILY
     Route: 042
     Dates: start: 20170308, end: 20170719
  8. AUGMENTIN [Suspect]
     Active Substance: AMOXICILLIN\CLAVULANATE POTASSIUM
     Indication: PYREXIA
     Dosage: 3 G DAILY
     Route: 042
     Dates: start: 20170731, end: 20170810

REACTIONS (2)
  - Neutropenia [Unknown]
  - Liver injury [Recovering/Resolving]

NARRATIVE: CASE EVENT DATE: 20170807
